FAERS Safety Report 5524181-1 (Version None)
Quarter: 2007Q4

REPORT INFORMATION
  Report Type: 
  Country: None (occurrence: None)
  Receive Date: 20071121
  Receipt Date: 20071113
  Transmission Date: 20080405
  Serious: Yes (Other)
  Sender: FDA-Public Use
  Company Number: US-PFIZER INC-2007085523

PATIENT
  Sex: Female

DRUGS (5)
  1. CHANTIX [Suspect]
     Indication: SMOKING CESSATION THERAPY
  2. LITHIUM CARBONATE [Concomitant]
  3. HYDROCODONE BITARTRATE [Concomitant]
  4. AZITHROMYCIN [Concomitant]
  5. GUAIFENESIN [Concomitant]

REACTIONS (7)
  - ANXIETY [None]
  - CONFUSIONAL STATE [None]
  - DEMENTIA [None]
  - DRUG LEVEL INCREASED [None]
  - IMPAIRED DRIVING ABILITY [None]
  - INSOMNIA [None]
  - PERSONALITY CHANGE [None]
